FAERS Safety Report 17541232 (Version 2)
Quarter: 2020Q2

REPORT INFORMATION
  Report Type: Spontaneous
  Country: JP (occurrence: JP)
  Receive Date: 20200313
  Receipt Date: 20200413
  Transmission Date: 20200713
  Serious: Yes (Other)
  Sender: FDA-Public Use
  Company Number: JP-BAYER-2020-041852

PATIENT
  Age: 52 Year
  Sex: Male
  Weight: 75 kg

DRUGS (3)
  1. GADOVIST [Suspect]
     Active Substance: GADOBUTROL
     Indication: PROSTATE CANCER
     Dosage: 7.5 ML, ONCE
     Route: 042
     Dates: start: 20200307, end: 20200307
  2. SODIUM CHLORIDE. [Concomitant]
     Active Substance: SODIUM CHLORIDE
     Dosage: PUSH WITH SALINE 50 ML
     Dates: start: 20200307
  3. GADOVIST [Suspect]
     Active Substance: GADOBUTROL
     Indication: MAGNETIC RESONANCE IMAGING

REACTIONS (6)
  - Bradycardia [Recovered/Resolved]
  - Discomfort [Recovering/Resolving]
  - Cough [Recovering/Resolving]
  - Myocardial infarction [None]
  - Vomiting [Recovered/Resolved]
  - Nausea [None]

NARRATIVE: CASE EVENT DATE: 20200307
